FAERS Safety Report 9113961 (Version 2)
Quarter: 2013Q1

REPORT INFORMATION
  Report Type: Spontaneous
  Country: US (occurrence: US)
  Receive Date: 20130129
  Receipt Date: 20130315
  Transmission Date: 20140127
  Serious: No
  Sender: FDA-Public Use
  Company Number: US-PFIZER INC-2013034040

PATIENT
  Age: 57 Year
  Sex: Male
  Weight: 109 kg

DRUGS (5)
  1. LYRICA [Suspect]
     Indication: DIZZINESS
     Dosage: 50 MG, AS NEEDED
     Dates: start: 20130104
  2. LYRICA [Suspect]
     Indication: HEADACHE
  3. LYRICA [Suspect]
     Indication: VERTIGO
  4. TOPROL [Concomitant]
     Indication: HYPERTENSION
     Dosage: 100 MG, DAILY
  5. HYDROCHLOROTHIAZIDE [Concomitant]
     Indication: HYPERTENSION
     Dosage: 12.5 MG, DAILY

REACTIONS (2)
  - Off label use [Not Recovered/Not Resolved]
  - Drug ineffective for unapproved indication [Unknown]
